FAERS Safety Report 13784397 (Version 1)
Quarter: 2017Q3

REPORT INFORMATION
  Report Type: Report from Study
  Country: US (occurrence: US)
  Receive Date: 20170724
  Receipt Date: 20170724
  Transmission Date: 20171127
  Serious: Yes (Other)
  Sender: FDA-Public Use
  Company Number: US-BAXTER-2017BAX028497

PATIENT
  Age: 49 Year
  Sex: Female

DRUGS (1)
  1. METRONIDAZOLE INJECTION, USP [Suspect]
     Active Substance: METRONIDAZOLE
     Indication: ANTIBIOTIC THERAPY
     Route: 065

REACTIONS (4)
  - Drug eruption [Recovered/Resolved]
  - Rash papular [Recovered/Resolved]
  - CD30 expression [Recovered/Resolved]
  - Nodular rash [Recovered/Resolved]
